FAERS Safety Report 6232800-X (Version None)
Quarter: 2009Q2

REPORT INFORMATION
  Report Type: 
  Country: None (occurrence: None)
  Receive Date: 20090617
  Receipt Date: 20090609
  Transmission Date: 20091009
  Serious: Yes (Other)
  Sender: FDA-Public Use
  Company Number: JP-ASTRAZENECA-2009AP02485

PATIENT
  Age: 14 Year
  Sex: Female
  Weight: 55 kg

DRUGS (16)
  1. XYLOCAINE [Suspect]
     Indication: ANALGESIA
     Route: 008
     Dates: start: 20090323, end: 20090323
  2. DIPRIVAN [Suspect]
     Indication: INDUCTION AND MAINTENANCE OF ANAESTHESIA
     Dosage: 1%, 3.0 UG/ML
     Route: 042
     Dates: start: 20090323, end: 20090323
  3. FENTANYL [Suspect]
     Indication: ANALGESIA
     Route: 042
     Dates: start: 20090323, end: 20090323
  4. FENTANYL [Suspect]
     Indication: INDUCTION OF ANAESTHESIA
     Route: 042
     Dates: start: 20090323, end: 20090323
  5. FENTANYL [Suspect]
     Route: 042
     Dates: start: 20090323, end: 20090323
  6. FENTANYL [Suspect]
     Route: 042
     Dates: start: 20090323, end: 20090323
  7. ATROPINE SULFATE [Suspect]
     Indication: INDUCTION OF ANAESTHESIA
     Route: 042
     Dates: start: 20090323, end: 20090323
  8. ISOTONIC SODIUM CHLORIDE SOLUTION [Suspect]
     Route: 042
     Dates: start: 20090323, end: 20090323
  9. DORMICUM [Suspect]
     Indication: ANALGESIA
     Route: 042
     Dates: start: 20090323, end: 20090323
  10. MUSCULAX [Suspect]
     Indication: INDUCTION OF ANAESTHESIA
     Route: 042
     Dates: start: 20090323, end: 20090323
  11. ULTIVA [Suspect]
     Indication: INDUCTION OF ANAESTHESIA
     Route: 042
     Dates: start: 20090323, end: 20090323
  12. SOLACET F [Suspect]
     Indication: INDUCTION OF ANAESTHESIA
     Route: 042
     Dates: start: 20090323, end: 20090323
  13. PENTCILLIN [Suspect]
     Route: 042
     Dates: start: 20090323, end: 20090323
  14. NEGMIN [Suspect]
     Indication: INFECTION PROPHYLAXIS
     Dosage: DOSE UNKNOWN
     Route: 065
     Dates: start: 20090323, end: 20090323
  15. HYPO ETHANOL [Suspect]
     Indication: INFECTION PROPHYLAXIS
     Dosage: DOSE UNKNOWN
     Route: 065
     Dates: start: 20090323, end: 20090323
  16. MASKIN-W [Suspect]
     Indication: INFECTION PROPHYLAXIS
     Dosage: DOSE UNKNOWN
     Route: 065
     Dates: start: 20090323, end: 20090323

REACTIONS (1)
  - ANAPHYLACTIC SHOCK [None]
